FAERS Safety Report 25300394 (Version 1)
Quarter: 2025Q2

REPORT INFORMATION
  Report Type: Spontaneous
  Country: US (occurrence: None)
  Receive Date: 20250510
  Receipt Date: 20250510
  Transmission Date: 20250716
  Serious: No
  Sender: FDA-CTU
  Company Number: None

PATIENT
  Age: 34 Year
  Sex: Female

DRUGS (1)
  1. CIPROFLOXACIN [Suspect]
     Active Substance: CIPROFLOXACIN
     Indication: Urinary tract infection
     Dates: start: 20250507, end: 20250509

REACTIONS (3)
  - Arthralgia [None]
  - Hypoaesthesia [None]
  - Diarrhoea [None]

NARRATIVE: CASE EVENT DATE: 20250508
